FAERS Safety Report 19786261 (Version 1)
Quarter: 2021Q3

REPORT INFORMATION
  Report Type: Spontaneous
  Country: US (occurrence: US)
  Receive Date: 20210903
  Receipt Date: 20210903
  Transmission Date: 20211014
  Serious: Yes (Other)
  Sender: FDA-Public Use
  Company Number: US-TOLMAR, INC.-21US030071

PATIENT
  Age: 24 Year
  Sex: Female

DRUGS (3)
  1. ELIGARD [Suspect]
     Active Substance: LEUPROLIDE ACETATE
     Indication: TRANSGENDER HORMONAL THERAPY
     Dosage: 22.5 MILLIGRAM, Q 3 MONTH
  2. ESTRADIOL. [Concomitant]
     Active Substance: ESTRADIOL
     Indication: TRANSGENDER HORMONAL THERAPY
     Dosage: UNK
  3. ESTRADIOL VALERATE. [Concomitant]
     Active Substance: ESTRADIOL VALERATE
     Indication: TRANSGENDER HORMONAL THERAPY
     Dosage: UNK

REACTIONS (2)
  - Testicular germ cell tumour mixed [Unknown]
  - Off label use [Unknown]
